FAERS Safety Report 19490544 (Version 1)
Quarter: 2021Q3

REPORT INFORMATION
  Report Type: Spontaneous
  Country: DE (occurrence: DE)
  Receive Date: 20210705
  Receipt Date: 20210705
  Transmission Date: 20211014
  Serious: Yes (Hospitalization, Other)
  Sender: FDA-Public Use
  Company Number: DE-AUROBINDO-AUR-APL-2021-027999

PATIENT
  Age: 34 Year
  Sex: Female

DRUGS (26)
  1. ACETYLCYSTEINE. [Concomitant]
     Active Substance: ACETYLCYSTEINE
     Indication: PRODUCT USED FOR UNKNOWN INDICATION
     Dosage: UNK
     Route: 065
  2. BERODUAL [Concomitant]
     Active Substance: FENOTEROL HYDROBROMIDE\IPRATROPIUM BROMIDE
     Indication: PRODUCT USED FOR UNKNOWN INDICATION
     Dosage: UNK
     Route: 065
  3. CREON [Concomitant]
     Active Substance: PANCRELIPASE AMYLASE\PANCRELIPASE LIPASE\PANCRELIPASE PROTEASE
     Indication: PRODUCT USED FOR UNKNOWN INDICATION
     Dosage: UNK
     Route: 065
  4. TRIMETHOPRIM. [Concomitant]
     Active Substance: TRIMETHOPRIM
     Indication: PRODUCT USED FOR UNKNOWN INDICATION
     Dosage: 2 DOSAGE FORM
     Route: 048
     Dates: start: 20201007, end: 202010
  5. NOVORAPID [Concomitant]
     Active Substance: INSULIN ASPART
     Indication: PRODUCT USED FOR UNKNOWN INDICATION
     Dosage: UNK
     Route: 065
  6. COTRIM FORTE [Interacting]
     Active Substance: SULFAMETHOXAZOLE\TRIMETHOPRIM
     Indication: C-REACTIVE PROTEIN INCREASED
  7. BOSWELLIA SACRA [Concomitant]
     Indication: PRODUCT USED FOR UNKNOWN INDICATION
     Dosage: UNK
     Route: 065
     Dates: start: 201902
  8. VIANI [Concomitant]
     Active Substance: FLUTICASONE PROPIONATE\SALMETEROL XINAFOATE
     Indication: PRODUCT USED FOR UNKNOWN INDICATION
     Dosage: 1 DOSAGE FORM
     Route: 065
  9. KALYDECO [Interacting]
     Active Substance: IVACAFTOR
     Dosage: 150 MILLIGRAM, 3 TIMES A DAY
     Route: 048
     Dates: start: 20201210, end: 202012
  10. FLUTICASONE PROPIONATE. [Concomitant]
     Active Substance: FLUTICASONE PROPIONATE
     Indication: PRODUCT USED FOR UNKNOWN INDICATION
     Dosage: UNK
     Route: 065
  11. URSODEOXYCHOLIC ACID [Concomitant]
     Active Substance: URSODIOL
     Indication: PRODUCT USED FOR UNKNOWN INDICATION
     Dosage: UNK
     Route: 065
  12. COTRIM FORTE [Interacting]
     Active Substance: SULFAMETHOXAZOLE\TRIMETHOPRIM
     Indication: CYSTIC FIBROSIS
     Dosage: 2 DOSAGE FORM
     Route: 048
     Dates: start: 20201007, end: 20201011
  13. KAFTRIO [Interacting]
     Active Substance: ELEXACAFTOR\IVACAFTOR\TEZACAFTOR
     Dosage: 2 DOSAGE FORM, 3 TIMES A DAY
     Route: 048
     Dates: start: 20201210, end: 202012
  14. KALYDECO [Interacting]
     Active Substance: IVACAFTOR
     Dosage: 1 DOSAGE FORM, ONCE A DAY(1 TABLET IN THE EVENING)
     Route: 048
     Dates: start: 20200929
  15. KAFTRIO [Interacting]
     Active Substance: ELEXACAFTOR\IVACAFTOR\TEZACAFTOR
     Indication: PRODUCT USED FOR UNKNOWN INDICATION
     Dosage: 2 DOSAGE FORM, EVERY THREE DAYS
     Route: 048
  16. KALYDECO [Interacting]
     Active Substance: IVACAFTOR
     Indication: CYSTIC FIBROSIS
     Dosage: 2 DOSAGE FORM,EVERY THREE DAYS
     Route: 048
  17. KALYDECO [Interacting]
     Active Substance: IVACAFTOR
     Dosage: 1 DOSAGE FORM, ONCE A DAY(150 MILLIGRAM, QD|)
     Route: 048
     Dates: start: 202012
  18. KAFTRIO [Interacting]
     Active Substance: ELEXACAFTOR\IVACAFTOR\TEZACAFTOR
     Dosage: 2 DOSAGE FORM, TWO TIMES A DAY
     Route: 048
     Dates: start: 202012, end: 202012
  19. KAFTRIO [Interacting]
     Active Substance: ELEXACAFTOR\IVACAFTOR\TEZACAFTOR
     Dosage: 2 DOSAGE FORM, ONCE A DAY
     Route: 048
     Dates: start: 202012
  20. FERRO SANOL [Concomitant]
     Active Substance: FERROUS GLYCINE SULFATE
     Indication: PRODUCT USED FOR UNKNOWN INDICATION
     Dosage: 1 DOSAGE FORM
     Route: 065
  21. SODIUM CHLORIDE. [Concomitant]
     Active Substance: SODIUM CHLORIDE
     Indication: PRODUCT USED FOR UNKNOWN INDICATION
     Dosage: 1 DOSAGE FORM
     Route: 065
  22. PANTOPRAZOLE [Suspect]
     Active Substance: PANTOPRAZOLE
     Indication: PRODUCT USED FOR UNKNOWN INDICATION
     Dosage: UNK
     Route: 065
  23. KALYDECO [Interacting]
     Active Substance: IVACAFTOR
     Indication: PRODUCT USED FOR UNKNOWN INDICATION
     Dosage: 150 MILLIGRAM, TWO TIMES A DAY
     Route: 048
  24. ONDANSETRON [Concomitant]
     Active Substance: ONDANSETRON
     Indication: PRODUCT USED FOR UNKNOWN INDICATION
     Dosage: UNK
     Route: 065
  25. INSULIN [Concomitant]
     Active Substance: INSULIN NOS
     Indication: PRODUCT USED FOR UNKNOWN INDICATION
     Dosage: UNK
     Route: 065
  26. KAFTRIO [Interacting]
     Active Substance: ELEXACAFTOR\IVACAFTOR\TEZACAFTOR
     Indication: CYSTIC FIBROSIS
     Dosage: 2 DOSAGE FORM, ONCE A DAY(2 TABLETS IN THE MORNING )
     Route: 048
     Dates: start: 20200929

REACTIONS (11)
  - Secretion discharge [Recovered/Resolved]
  - Sputum increased [Recovered/Resolved]
  - Blood glucose decreased [Recovering/Resolving]
  - Oxygen saturation decreased [Recovered/Resolved]
  - Drug interaction [Unknown]
  - Frequent bowel movements [Recovering/Resolving]
  - Heart rate increased [Recovered/Resolved]
  - Bronchial secretion retention [Recovered/Resolved]
  - Accidental overdose [Unknown]
  - Respiratory tract haemorrhage [Recovered/Resolved]
  - Condition aggravated [Unknown]

NARRATIVE: CASE EVENT DATE: 202010
